FAERS Safety Report 10574984 (Version 1)
Quarter: 2014Q4

REPORT INFORMATION
  Report Type: Other
  Country: GB (occurrence: GB)
  Receive Date: 20141111
  Receipt Date: 20141111
  Transmission Date: 20150529
  Serious: Yes (Other)
  Sender: FDA-Public Use
  Company Number: GB-MYLANLABS-2014M1009124

PATIENT

DRUGS (4)
  1. SYMBICORT [Concomitant]
     Active Substance: BUDESONIDE\FORMOTEROL FUMARATE DIHYDRATE
  2. SALBUTAMOL [Concomitant]
     Active Substance: ALBUTEROL
  3. COTRIMOXAZOLE [Concomitant]
     Active Substance: SULFAMETHOXAZOLE\TRIMETHOPRIM
  4. DOXYCYCLINE. [Suspect]
     Active Substance: DOXYCYCLINE
     Indication: RESPIRATORY TRACT INFECTION
     Dosage: 100 MG, UNK
     Route: 048
     Dates: start: 20141017, end: 20141017

REACTIONS (5)
  - Arthralgia [Recovering/Resolving]
  - Feeling cold [Recovering/Resolving]
  - Nausea [Recovering/Resolving]
  - Vertigo [Recovering/Resolving]
  - Dizziness [Recovering/Resolving]

NARRATIVE: CASE EVENT DATE: 20141017
